FAERS Safety Report 6510614-0 (Version None)
Quarter: 2009Q4

REPORT INFORMATION
  Report Type: 
  Country: None (occurrence: None)
  Receive Date: 20091222
  Receipt Date: 20090106
  Transmission Date: 20100525
  Serious: No
  Sender: FDA-Public Use
  Company Number: CA-ASTRAZENECA-2009UW00231

PATIENT
  Age: 70 Year
  Sex: Male

DRUGS (4)
  1. CRESTOR [Suspect]
     Indication: BLOOD CHOLESTEROL
     Route: 048
     Dates: start: 20081221, end: 20081226
  2. DIOVAN [Concomitant]
  3. ADALAT [Concomitant]
  4. PREVACID [Concomitant]

REACTIONS (1)
  - JOINT SWELLING [None]
